FAERS Safety Report 7546684-0 (Version None)
Quarter: 2011Q2

REPORT INFORMATION
  Report Type: 
  Country: None (occurrence: None)
  Receive Date: 20110614
  Receipt Date: 20110610
  Transmission Date: 20111010
  Serious: Yes (Hospitalization)
  Sender: FDA-Public Use
  Company Number: A0731295A

PATIENT
  Age: 67 Year
  Sex: Male

DRUGS (1)
  1. AVANDIA [Suspect]
     Dosage: 8MG PER DAY
     Route: 048
     Dates: start: 20000101

REACTIONS (5)
  - ASTHENIA [None]
  - CORONARY ARTERY BYPASS [None]
  - FATIGUE [None]
  - DYSPNOEA [None]
  - CARDIAC ASSISTANCE DEVICE USER [None]
